FAERS Safety Report 13782863 (Version 1)
Quarter: 2017Q3

REPORT INFORMATION
  Report Type: Spontaneous
  Country: US (occurrence: US)
  Receive Date: 20170724
  Receipt Date: 20170724
  Transmission Date: 20171127
  Serious: Yes (Hospitalization)
  Sender: FDA-Public Use
  Company Number: US-LPDUSPRD-20171049

PATIENT
  Age: 71 Year
  Sex: Female

DRUGS (1)
  1. HYDRALAZINE HCL INJECTION, USP (0901-25) [Suspect]
     Active Substance: HYDRALAZINE HYDROCHLORIDE
     Dosage: 100 MG
     Route: 065

REACTIONS (7)
  - Muscular weakness [Unknown]
  - Dyspnoea [Unknown]
  - Gastrointestinal haemorrhage [Recovered/Resolved]
  - Mucocutaneous ulceration [Recovering/Resolving]
  - Vasculitis [Recovering/Resolving]
  - Odynophagia [Recovering/Resolving]
  - Antineutrophil cytoplasmic antibody positive [Recovered/Resolved]
